FAERS Safety Report 6427310-0 (Version None)
Quarter: 2009Q4

REPORT INFORMATION
  Report Type: 
  Country: None (occurrence: None)
  Receive Date: 20091104
  Receipt Date: 20091026
  Transmission Date: 20100525
  Serious: Yes (Hospitalization)
  Sender: FDA-Public Use
  Company Number: B0601500A

PATIENT
  Age: 57 Year
  Sex: Female

DRUGS (2)
  1. LAPATINIB [Suspect]
     Route: 065
  2. CAPECITABINE [Suspect]
     Route: 065

REACTIONS (4)
  - DEHYDRATION [None]
  - DIARRHOEA [None]
  - MINERAL DEFICIENCY [None]
  - WEIGHT DECREASED [None]
